FAERS Safety Report 6917090-4 (Version None)
Quarter: 2010Q3

REPORT INFORMATION
  Report Type: 
  Country: None (occurrence: None)
  Receive Date: 20100810
  Receipt Date: 20100730
  Transmission Date: 20110219
  Serious: Yes (Hospitalization)
  Sender: FDA-Public Use
  Company Number: B0547844A

PATIENT
  Sex: Female
  Weight: 60 kg

DRUGS (4)
  1. ARIXTRA [Suspect]
     Indication: THROMBOSIS PROPHYLAXIS
     Dosage: 2.5MG PER DAY
     Route: 058
     Dates: start: 20081002, end: 20081003
  2. ROPION [Suspect]
     Indication: ANALGESIC THERAPY
     Dosage: 250MG PER DAY
     Route: 042
     Dates: start: 20081002, end: 20081003
  3. LORCAM [Suspect]
     Indication: ANALGESIC THERAPY
     Dosage: 100MG PER DAY
     Route: 048
  4. VOLTAREN [Suspect]
     Indication: ANALGESIC THERAPY
     Dosage: 100MG PER DAY

REACTIONS (3)
  - HAEMOGLOBIN DECREASED [None]
  - PLATELET COUNT INCREASED [None]
  - POST PROCEDURAL HAEMORRHAGE [None]
